FAERS Safety Report 4555991-5 (Version None)
Quarter: 2005Q1

REPORT INFORMATION
  Report Type: 
  Country: None (occurrence: None)
  Receive Date: 20050110
  Receipt Date: 20040616
  Transmission Date: 20050727
  Serious: Yes (Life-Threatening, Hospitalization)
  Sender: FDA-Public Use
  Company Number: US000759

PATIENT
  Age: 77 Year
  Sex: Male

DRUGS (7)
  1. ANAKINRA [Suspect]
     Indication: RHEUMATOID ARTHRITIS
     Dosage: SC
     Route: 058
     Dates: start: 20000229, end: 20000719
  2. METHOTREXATE [Concomitant]
  3. DIGOXIN [Concomitant]
  4. CELECOXIB [Concomitant]
  5. LEVOTHYROXINE SODIUM [Concomitant]
  6. WARFARIN SODIUM [Concomitant]
  7. ROFECOXIB [Concomitant]

REACTIONS (1)
  - PNEUMONIA [None]
